FAERS Safety Report 8271519-0 (Version None)
Quarter: 2012Q1

REPORT INFORMATION
  Report Type: 
  Country: None (occurrence: None)
  Receive Date: 20120327
  Receipt Date: 20100325
  Transmission Date: 20120608
  Serious: Yes (Other)
  Sender: FDA-Public Use
  Company Number: PHEH2010US03354

PATIENT
  Age: 48 Year
  Sex: Female

DRUGS (9)
  1. MOTRIN IB [Concomitant]
  2. SINGULAIR [Concomitant]
  3. PREVACID [Concomitant]
  4. NORVASC [Concomitant]
  5. GLEEVEC [Suspect]
     Indication: CHRONIC MYELOID LEUKAEMIA
     Dosage: 400 MG, QD, ORAL
     Route: 048
     Dates: start: 20100201, end: 20100301
  6. IRON (IRON) [Concomitant]
  7. ASCORBIC ACID [Concomitant]
  8. AMBIEN [Concomitant]
  9. DIOVAN [Concomitant]

REACTIONS (3)
  - HAEMOGLOBIN DECREASED [None]
  - DYSPNOEA [None]
  - ANAEMIA [None]
